FAERS Safety Report 10865368 (Version 1)
Quarter: 2015Q1

REPORT INFORMATION
  Report Type: Report from Study
  Country: US (occurrence: US)
  Receive Date: 20150224
  Receipt Date: 20150224
  Transmission Date: 20150721
  Serious: No
  Sender: FDA-Public Use
  Company Number: US-MYLANLABS-2014S1011345

PATIENT
  Sex: Male
  Weight: 58.97 kg

DRUGS (2)
  1. AMNESTEEM [Suspect]
     Active Substance: ISOTRETINOIN
     Indication: ACNE CYSTIC
     Dosage: 20 MG,QD
     Route: 048
     Dates: start: 20131220, end: 20140320
  2. CLARAVIS [Suspect]
     Active Substance: ISOTRETINOIN
     Indication: ACNE CYSTIC
     Dosage: 30 MG,QD
     Route: 048
     Dates: start: 201402, end: 201403

REACTIONS (1)
  - Sluggishness [Recovered/Resolved]
